FAERS Safety Report 17769302 (Version 1)
Quarter: 2020Q2

REPORT INFORMATION
  Report Type: Report from Study
  Country: US (occurrence: US)
  Receive Date: 20200512
  Receipt Date: 20200512
  Transmission Date: 20200714
  Serious: Yes (Life-Threatening, Hospitalization, Other)
  Sender: FDA-Public Use
  Company Number: US-ASPEN-GLO2020US004810

PATIENT
  Age: 16 Year
  Sex: Female
  Weight: 70.4 kg

DRUGS (7)
  1. TIOGUANINE [Suspect]
     Active Substance: THIOGUANINE ANHYDROUS
     Indication: PRECURSOR B-LYMPHOBLASTIC LYMPHOMA
     Dosage: 80 MG, (DAYS 29-42)
     Route: 048
     Dates: start: 20200127
  2. METHOTREXATE. [Suspect]
     Active Substance: METHOTREXATE
     Indication: PRECURSOR B-LYMPHOBLASTIC LYMPHOMA
     Dosage: 15 MG, (DAYS 1, 29, 36)
     Route: 037
     Dates: start: 20191212
  3. CYCLOPHOSPHAMIDE. [Suspect]
     Active Substance: CYCLOPHOSPHAMIDE
     Indication: PRECURSOR B-LYMPHOBLASTIC LYMPHOMA
     Dosage: 1950 MG, (DAY 29)
     Route: 042
     Dates: start: 20200127
  4. PEGASPARGASE [Suspect]
     Active Substance: PEGASPARGASE
     Indication: PRECURSOR B-LYMPHOBLASTIC LYMPHOMA
     Dosage: 3750 IU, (DAY 4-43)
     Route: 042
     Dates: start: 20191217
  5. RUXOLITINIB [Suspect]
     Active Substance: RUXOLITINIB
     Indication: PRECURSOR B-LYMPHOBLASTIC LYMPHOMA
     Dosage: 95 MG, BID (DAYS 29-42)
     Route: 048
     Dates: start: 20190709, end: 20200313
  6. VINCRISTINE [Suspect]
     Active Substance: VINCRISTINE
     Indication: PRECURSOR B-LYMPHOBLASTIC LYMPHOMA
     Dosage: 2 MG, (DAYS 1, 8, 15, 43,50)
     Route: 042
     Dates: start: 20191212
  7. CYTARABINE. [Suspect]
     Active Substance: CYTARABINE
     Indication: B PRECURSOR TYPE ACUTE LEUKAEMIA
     Dosage: 146 MG, (DAYS 29-32, 36-39)
     Route: 042
     Dates: start: 20200127

REACTIONS (2)
  - Cryptococcal fungaemia [Recovered/Resolved]
  - Subclavian vein thrombosis [Not Recovered/Not Resolved]

NARRATIVE: CASE EVENT DATE: 20200229
